FAERS Safety Report 6769335-1 (Version None)
Quarter: 2010Q2

REPORT INFORMATION
  Report Type: 
  Country: None (occurrence: None)
  Receive Date: 20100607
  Receipt Date: 20100531
  Transmission Date: 20101027
  Serious: Yes (Death, Hospitalization)
  Sender: FDA-Public Use
  Company Number: 2010SP030137

PATIENT
  Age: 70 Year
  Sex: Female

DRUGS (3)
  1. ORGARAN [Suspect]
     Indication: DISSEMINATED INTRAVASCULAR COAGULATION
  2. ORGARAN [Suspect]
     Indication: THROMBOCYTOPENIA
  3. HEPARIN (OTHER MFR) (HEPARIN) [Suspect]
     Indication: VASCULAR GRAFT

REACTIONS (6)
  - DISSEMINATED INTRAVASCULAR COAGULATION [None]
  - DRUG HYPERSENSITIVITY [None]
  - HEPARIN-INDUCED THROMBOCYTOPENIA [None]
  - INFARCTION [None]
  - THROMBOSIS [None]
  - VASCULAR GRAFT OCCLUSION [None]
